FAERS Safety Report 8114539-9 (Version None)
Quarter: 2012Q1

REPORT INFORMATION
  Report Type: 
  Country: None (occurrence: None)
  Receive Date: 20120206
  Receipt Date: 20120130
  Transmission Date: 20120608
  Serious: No
  Sender: FDA-Public Use
  Company Number: US-PFIZER INC-2012026089

PATIENT
  Sex: Female

DRUGS (2)
  1. VENLAFAXINE HCL [Suspect]
     Dosage: UNK
     Dates: end: 20120120
  2. EFFEXOR XR [Suspect]
     Dosage: UNK
     Dates: start: 20110101

REACTIONS (2)
  - HEADACHE [None]
  - PRURITUS GENERALISED [None]
